FAERS Safety Report 25741914 (Version 2)
Quarter: 2025Q3

REPORT INFORMATION
  Report Type: Spontaneous
  Country: EU (occurrence: EU)
  Receive Date: 20250829
  Receipt Date: 20250901
  Transmission Date: 20251021
  Serious: Yes (Hospitalization)
  Sender: EXELIXIS
  Company Number: EU-IPSEN Group, Research and Development-2025-20723

PATIENT
  Age: 64 Year
  Sex: Male
  Weight: 122 kg

DRUGS (1)
  1. CABOMETYX [Suspect]
     Active Substance: CABOZANTINIB S-MALATE
     Indication: Renal cancer metastatic
     Route: 048
     Dates: start: 20231102, end: 20231116

REACTIONS (1)
  - Cerebrovascular accident [Not Recovered/Not Resolved]

NARRATIVE: CASE EVENT DATE: 20231116
